FAERS Safety Report 10472602 (Version 1)
Quarter: 2014Q3

REPORT INFORMATION
  Report Type: Spontaneous
  Country: CA (occurrence: None)
  Receive Date: 20140923
  Receipt Date: 20140923
  Transmission Date: 20150326
  Serious: Yes (Other)
  Sender: FDA-Public Use
  Company Number: None

PATIENT
  Age: 43 Year
  Sex: Female
  Weight: 56.7 kg

DRUGS (1)
  1. NIACINAMIDE [Suspect]
     Active Substance: NIACINAMIDE
     Dosage: PORTION OF 1 TABLET TAKEN BY MOUTH
     Route: 048

REACTIONS (8)
  - Generalised erythema [None]
  - Nausea [None]
  - Accidental exposure to product [None]
  - Pruritus [None]
  - Burning sensation [None]
  - Rash macular [None]
  - Pain [None]
  - Oedema peripheral [None]

NARRATIVE: CASE EVENT DATE: 20140922
